FAERS Safety Report 13972166 (Version 2)
Quarter: 2019Q4

REPORT INFORMATION
  Report Type: Report from Study
  Country: US (occurrence: US)
  Receive Date: 20170914
  Receipt Date: 20191213
  Transmission Date: 20200122
  Serious: Yes (Hospitalization, Other)
  Sender: FDA-Public Use
  Company Number: US-ASTELLAS-2016US042011

PATIENT
  Age: 73 Year
  Sex: Male

DRUGS (1)
  1. ENZALUTAMIDE [Suspect]
     Active Substance: ENZALUTAMIDE
     Indication: HORMONE-REFRACTORY PROSTATE CANCER
     Route: 048

REACTIONS (8)
  - Blood lactic acid increased [Unknown]
  - Pigmentation disorder [Unknown]
  - Blood sodium decreased [Unknown]
  - Product storage error [Unknown]
  - Loss of consciousness [Unknown]
  - Decreased appetite [Unknown]
  - Rash [Unknown]
  - Product physical issue [Unknown]

NARRATIVE: CASE EVENT DATE: 20191119
